FAERS Safety Report 8142332-X (Version None)
Quarter: 2012Q1

REPORT INFORMATION
  Report Type: 
  Country: None (occurrence: None)
  Receive Date: 20120216
  Receipt Date: 20120208
  Transmission Date: 20120608
  Serious: Yes (Death)
  Sender: FDA-Public Use
  Company Number: DE-NOVOPROD-340854

PATIENT
  Age: 22 Year
  Sex: Male
  Weight: 86 kg

DRUGS (1)
  1. ACTRAPID FLEXPEN [Suspect]
     Indication: OFF LABEL USE
     Route: 048

REACTIONS (3)
  - HYPOGLYCAEMIA [None]
  - INTENTIONAL DRUG MISUSE [None]
  - COMPLETED SUICIDE [None]
